FAERS Safety Report 4848264-4 (Version None)
Quarter: 2005Q4

REPORT INFORMATION
  Report Type: 
  Country: None (occurrence: None)
  Receive Date: 20051207
  Receipt Date: 20051207
  Transmission Date: 20060501
  Serious: Yes (Hospitalization)
  Sender: FDA-Public Use
  Company Number: None

PATIENT
  Sex: Female

DRUGS (2)
  1. RITUXIMAB (375 MG/M2) [Suspect]
     Indication: DIFFUSE LARGE B-CELL LYMPHOMA
     Dosage: DAY 1 OF A 21 DAY CYCLE
  2. VELCADE [Suspect]
     Dosage: DAY 1 + 4 OF 21 DAY CYCLE

REACTIONS (6)
  - BACTERIAL INFECTION [None]
  - FALL [None]
  - HEAD INJURY [None]
  - PYREXIA [None]
  - SINUS TACHYCARDIA [None]
  - SYNCOPE [None]
